FAERS Safety Report 8000854-6 (Version None)
Quarter: 2011Q4

REPORT INFORMATION
  Report Type: 
  Country: None (occurrence: None)
  Receive Date: 20111219
  Receipt Date: 20111213
  Transmission Date: 20120403
  Serious: Yes (Death, Hospitalization)
  Sender: FDA-Public Use
  Company Number: 1125400

PATIENT
  Age: 70 Year
  Sex: Male
  Weight: 66.3 kg

DRUGS (4)
  1. CYCLOPHOSPHAMIDE [Suspect]
     Indication: CHRONIC LYMPHOCYTIC LEUKAEMIA
     Dosage: 1212 MG,
     Dates: start: 20101227, end: 20110518
  2. NIPENT [Suspect]
     Indication: CHRONIC LYMPHOCYTIC LEUKAEMIA
     Dosage: 8 MG
     Dates: start: 20101227, end: 20110518
  3. (ALEMTUZUMAB) [Suspect]
     Indication: CHRONIC LYMPHOCYTIC LEUKAEMIA
     Dosage: 60 MG,
     Dates: start: 20111031, end: 20111102
  4. (RITUXIMAB) [Suspect]
     Indication: CHRONIC LYMPHOCYTIC LEUKAEMIA
     Dosage: 758 MG
     Dates: start: 20101227, end: 20110518

REACTIONS (32)
  - CONFUSIONAL STATE [None]
  - BRONCHITIS [None]
  - EFFUSION [None]
  - FUNGAL INFECTION [None]
  - CEREBRAL ATROPHY [None]
  - PERICARDIAL EFFUSION [None]
  - JUGULAR VEIN DISTENSION [None]
  - NUCHAL RIGIDITY [None]
  - BRADYCARDIA [None]
  - MOBILITY DECREASED [None]
  - ASCITES [None]
  - BLOOD PRESSURE FLUCTUATION [None]
  - HYPOTENSION [None]
  - LUNG NEOPLASM [None]
  - PNEUMOTHORAX [None]
  - MUSCULOSKELETAL STIFFNESS [None]
  - PANCYTOPENIA [None]
  - NON-SMALL CELL LUNG CANCER [None]
  - LUNG INFECTION [None]
  - CYTOMEGALOVIRUS TEST POSITIVE [None]
  - CANDIDIASIS [None]
  - FALL [None]
  - FACE INJURY [None]
  - ATELECTASIS [None]
  - DEHYDRATION [None]
  - SINUSITIS [None]
  - CARDIOMEGALY [None]
  - ASPERGILLOSIS [None]
  - DISEASE RECURRENCE [None]
  - ABDOMINAL DISTENSION [None]
  - CARDIAC FAILURE CONGESTIVE [None]
  - DEPRESSED LEVEL OF CONSCIOUSNESS [None]
